FAERS Safety Report 6209989-1 (Version None)
Quarter: 2009Q2

REPORT INFORMATION
  Report Type: 
  Country: None (occurrence: None)
  Receive Date: 20090529
  Receipt Date: 20090529
  Transmission Date: 20091009
  Serious: Yes (Life-Threatening)
  Sender: FDA-Public Use
  Company Number: None

PATIENT
  Sex: Female
  Weight: 55 kg

DRUGS (1)
  1. ISOFLURANE [Suspect]
     Indication: JAW OPERATION
     Dates: start: 20090311

REACTIONS (1)
  - HYPERTHERMIA MALIGNANT [None]
